FAERS Safety Report 22140979 (Version 1)
Quarter: 2023Q1

REPORT INFORMATION
  Report Type: Spontaneous
  Country: US (occurrence: US)
  Receive Date: 20230327
  Receipt Date: 20230327
  Transmission Date: 20230418
  Serious: Yes (Other)
  Sender: FDA-Public Use
  Company Number: US-REGENERON PHARMACEUTICALS, INC.-2023-045168

PATIENT
  Sex: Female

DRUGS (2)
  1. PRALUENT [Suspect]
     Active Substance: ALIROCUMAB
     Indication: Hypercholesterolaemia
     Dosage: 150 MG, Q2W
     Route: 058
     Dates: start: 20230202, end: 20230202
  2. UNSPECIFIED INGREDIENT [Concomitant]
     Active Substance: UNSPECIFIED INGREDIENT
     Indication: Product used for unknown indication
     Route: 065

REACTIONS (17)
  - Pulmonary oedema [Recovering/Resolving]
  - Blood pressure fluctuation [Recovered/Resolved]
  - Asthenia [Recovering/Resolving]
  - Tendon pain [Recovering/Resolving]
  - Gait inability [Recovering/Resolving]
  - Arthropathy [Recovering/Resolving]
  - Palpitations [Recovering/Resolving]
  - Palpitations [Recovering/Resolving]
  - Exostosis [Recovering/Resolving]
  - Peripheral swelling [Recovering/Resolving]
  - Discomfort [Recovering/Resolving]
  - Arthralgia [Recovering/Resolving]
  - Pain [Recovering/Resolving]
  - Contusion [Recovering/Resolving]
  - Myalgia [Recovering/Resolving]
  - Pruritus [Recovering/Resolving]
  - Influenza like illness [Recovering/Resolving]

NARRATIVE: CASE EVENT DATE: 20230101
